FAERS Safety Report 17606816 (Version 1)
Quarter: 2020Q1

REPORT INFORMATION
  Report Type: Spontaneous
  Country: GB (occurrence: GB)
  Receive Date: 20200331
  Receipt Date: 20200331
  Transmission Date: 20200409
  Serious: Yes (Other)
  Sender: FDA-Public Use
  Company Number: GB-JNJFOC-20200331855

PATIENT
  Age: 84 Year
  Sex: Female
  Weight: 68 kg

DRUGS (8)
  1. MST CONTINUS [Concomitant]
     Active Substance: MORPHINE SULFATE
     Dosage: 20 MG, QD
     Dates: start: 20200206
  2. ZOPICLONE [Concomitant]
     Active Substance: ZOPICLONE
     Indication: INSOMNIA
     Dosage: 3.75 MG,AT NIGHT FOR OCCASIONAL USE.
     Dates: start: 20191209
  3. WARFARIN [Concomitant]
     Active Substance: WARFARIN
     Dosage: 1 MG,AS DIRECTED
     Dates: start: 20191217
  4. CYCLIZINE [Concomitant]
     Active Substance: CYCLIZINE
     Indication: NAUSEA
     Dosage: 50 MG, PRN (THREE TIMES DAILY   )
     Dates: start: 20191209
  5. ZISPIN [Concomitant]
     Active Substance: MIRTAZAPINE
     Dosage: 15 MG, QD,AT NIGHT
     Dates: start: 20200108
  6. RIVAROXABAN [Suspect]
     Active Substance: RIVAROXABAN
     Indication: PRODUCT USED FOR UNKNOWN INDICATION
     Dosage: 10 MG
     Route: 048
  7. DOXYCYCLINE. [Concomitant]
     Active Substance: DOXYCYCLINE
     Dosage: 100 MG,2 ON DAY 1, THEN 1 EVERY DAY
     Dates: start: 20191206
  8. AMOXICILLIN. [Concomitant]
     Active Substance: AMOXICILLIN
     Dosage: 1500 MG, QD
     Dates: start: 20191209

REACTIONS (4)
  - Abdominal distension [Not Recovered/Not Resolved]
  - Diarrhoea [Not Recovered/Not Resolved]
  - Dyspnoea [Recovering/Resolving]
  - Abdominal pain [Not Recovered/Not Resolved]

NARRATIVE: CASE EVENT DATE: 20200301
